FAERS Safety Report 25636434 (Version 3)
Quarter: 2025Q4

REPORT INFORMATION
  Report Type: Report from Study
  Country: US (occurrence: US)
  Receive Date: 20250803
  Receipt Date: 20251008
  Transmission Date: 20260117
  Serious: Yes (Hospitalization)
  Sender: DECIPHERA PHARMACEUTICALS
  Company Number: US-DECIPHERA PHARMACEUTICALS LLC-2025US000910

PATIENT
  Age: 23 Year
  Sex: Male
  Weight: 169.37 kg

DRUGS (2)
  1. ROMVIMZA [Suspect]
     Active Substance: VIMSELTINIB
     Indication: Giant cell tumour of tendon sheath
     Dosage: 30 MILLIGRAM, TWICE WEEKLY (WITH A MINIMUM OF 72 HOURS- ATLEAST 3 DAYS BETWEEN DOSES)
     Dates: start: 20250319, end: 2025
  2. ROMVIMZA [Suspect]
     Active Substance: VIMSELTINIB
     Dosage: 30 MILLIGRAM, TWICE WEEKLY (WITH A MINIMUM OF 72 HOURS- ATLEAST 3 DAYS BETWEEN DOSES)
     Dates: start: 202507

REACTIONS (2)
  - Infection [Unknown]
  - Laboratory test abnormal [Unknown]

NARRATIVE: CASE EVENT DATE: 20250101
